FAERS Safety Report 11614932 (Version 1)
Quarter: 2015Q4

REPORT INFORMATION
  Report Type: Spontaneous
  Country: JP (occurrence: JP)
  Receive Date: 20151009
  Receipt Date: 20151009
  Transmission Date: 20160304
  Serious: Yes (Death)
  Sender: FDA-Public Use
  Company Number: JP-BRISTOL-MYERS SQUIBB COMPANY-BMS-2015-015008

PATIENT
  Age: 63 Year
  Sex: Male
  Weight: 44 kg

DRUGS (3)
  1. ERBITUX [Suspect]
     Active Substance: CETUXIMAB
     Dosage: 390 MG, UNK
     Route: 041
     Dates: start: 20140909, end: 20140930
  2. ERBITUX [Suspect]
     Active Substance: CETUXIMAB
     Dosage: 370 MG, UNK
     Route: 041
     Dates: start: 20141007, end: 20141021
  3. ERBITUX [Suspect]
     Active Substance: CETUXIMAB
     Indication: HYPOPHARYNGEAL CANCER
     Dosage: 620 MG, QWK
     Route: 041
     Dates: start: 20140902, end: 20140902

REACTIONS (1)
  - Interstitial lung disease [Fatal]

NARRATIVE: CASE EVENT DATE: 20150212
